FAERS Safety Report 24618687 (Version 1)
Quarter: 2024Q4

REPORT INFORMATION
  Report Type: Report from Study
  Country: US (occurrence: US)
  Receive Date: 20241114
  Receipt Date: 20241114
  Transmission Date: 20250115
  Serious: Yes (Death)
  Sender: NOVARTIS
  Company Number: US-002147023-NVSC2024US218619

PATIENT
  Age: 74 Year
  Sex: Female

DRUGS (1)
  1. PIQRAY [Suspect]
     Active Substance: ALPELISIB
     Indication: Product used for unknown indication
     Dosage: 300 MG, QD (2 X 150 MG)
     Route: 048
     Dates: start: 20240201, end: 20240527

REACTIONS (1)
  - Death [Fatal]

NARRATIVE: CASE EVENT DATE: 20241030
